FAERS Safety Report 9302440 (Version 4)
Quarter: 2014Q1

REPORT INFORMATION
  Report Type: Spontaneous
  Country: US (occurrence: US)
  Receive Date: 20130522
  Receipt Date: 20140227
  Transmission Date: 20141002
  Serious: Yes (Hospitalization)
  Sender: FDA-Public Use
  Company Number: US-BIOGENIDEC-2013BI045220

PATIENT
  Age: 51 Year
  Sex: Male

DRUGS (1)
  1. TYSABRI [Suspect]
     Indication: MULTIPLE SCLEROSIS
     Route: 042
     Dates: start: 20120518, end: 20130607

REACTIONS (3)
  - Knee arthroplasty [Recovered/Resolved]
  - Cerebral autosomal dominant arteriopathy with subcortical infarcts and leukoencephalopathy [Not Recovered/Not Resolved]
  - Arthropathy [Not Recovered/Not Resolved]
